FAERS Safety Report 8818571 (Version 1)
Quarter: 2012Q4

REPORT INFORMATION
  Report Type: Spontaneous
  Country: US (occurrence: None)
  Receive Date: 20121004
  Receipt Date: 20121004
  Transmission Date: 20130627
  Serious: Yes (Disabling, Other)
  Sender: FDA-Public Use
  Company Number: None

PATIENT
  Age: 54 Year
  Sex: Male
  Weight: 63.5 kg

DRUGS (3)
  1. QUETIAPINE [Suspect]
     Indication: POST-TRAUMATIC STRESS DISORDER
     Dosage: 1 pill nightly ever night
     Dates: start: 201206, end: 20120709
  2. QUETIAPINE [Suspect]
     Indication: SLEEP DISORDER THERAPY
     Dosage: 1 pill nightly ever night
     Dates: start: 201206, end: 20120709
  3. SEROQUEL [Suspect]
     Indication: SLEEP DISORDER THERAPY
     Dates: start: 201207

REACTIONS (5)
  - Tachyphrenia [None]
  - Dysgraphia [None]
  - Speech disorder [None]
  - Mania [None]
  - Cognitive disorder [None]
